FAERS Safety Report 9325701 (Version 3)
Quarter: 2014Q3

REPORT INFORMATION
  Report Type: Report from Study
  Country: FR (occurrence: FR)
  Receive Date: 20130604
  Receipt Date: 20140706
  Transmission Date: 20150326
  Serious: Yes (Hospitalization)
  Sender: FDA-Public Use
  Company Number: PHHY2013FR055399

PATIENT
  Age: 10 Year
  Sex: Female
  Weight: 28 kg

DRUGS (3)
  1. EXJADE [Suspect]
     Active Substance: DEFERASIROX
  2. EXJADE [Suspect]
     Active Substance: DEFERASIROX
     Indication: THALASSAEMIA BETA
     Dosage: 375 MG, QD
     Route: 048
     Dates: start: 200611
  3. SPECIAFOLDINE [Concomitant]
     Active Substance: FOLIC ACID
     Dosage: 10 DF, MONTHLY
     Dates: start: 20061114

REACTIONS (1)
  - Renal colic [Recovered/Resolved]

NARRATIVE: CASE EVENT DATE: 20120425
